FAERS Safety Report 19804409 (Version 1)
Quarter: 2021Q3

REPORT INFORMATION
  Report Type: Spontaneous
  Country: US (occurrence: US)
  Receive Date: 20210908
  Receipt Date: 20210908
  Transmission Date: 20211014
  Serious: No
  Sender: FDA-Public Use
  Company Number: US-FARMAPROD-202106-0873

PATIENT
  Sex: Male

DRUGS (9)
  1. COLLAGEN [Concomitant]
     Active Substance: COLLAGEN
     Dosage: 125?740 MG
  2. OXERVATE [Suspect]
     Active Substance: CENEGERMIN-BKBJ
     Indication: HYPOAESTHESIA EYE
  3. GLUCOSAMINE?CHONDROITIN?D3 [Concomitant]
  4. POTASSIUM [Concomitant]
     Active Substance: POTASSIUM
     Dosage: 595(99) MG
  5. OMEGA?3?FISH OIL?VIT D3 [Concomitant]
  6. MULTIVITAMIN 50 PLUS [Concomitant]
  7. ACYCLOVIR. [Concomitant]
     Active Substance: ACYCLOVIR
  8. OXERVATE [Suspect]
     Active Substance: CENEGERMIN-BKBJ
     Indication: NEUROTROPHIC KERATOPATHY
     Route: 047
     Dates: start: 20210525
  9. VITAMIN E [Concomitant]
     Active Substance: .ALPHA.-TOCOPHEROL

REACTIONS (4)
  - Product dose omission issue [Unknown]
  - Periorbital pain [Unknown]
  - Eye pain [Unknown]
  - Product storage error [Unknown]
